FAERS Safety Report 16445667 (Version 3)
Quarter: 2019Q3

REPORT INFORMATION
  Report Type: Spontaneous
  Country: US (occurrence: US)
  Receive Date: 20190618
  Receipt Date: 20190926
  Transmission Date: 20191004
  Serious: Yes (Death, Hospitalization, Other)
  Sender: FDA-Public Use
  Company Number: US-BRISTOL-MYERS SQUIBB COMPANY-BMS-2019-059438

PATIENT
  Age: 65 Year
  Sex: Female
  Weight: 47.9 kg

DRUGS (2)
  1. OPDIVO [Suspect]
     Active Substance: NIVOLUMAB
     Indication: CERVIX CARCINOMA RECURRENT
     Dosage: 49 MILLIGRAM, Q3WK
     Route: 042
     Dates: start: 20190515, end: 20190605
  2. YERVOY [Suspect]
     Active Substance: IPILIMUMAB
     Indication: CERVIX CARCINOMA RECURRENT
     Dosage: 145 MILLIGRAM, Q3WK
     Route: 042
     Dates: start: 20190515, end: 20190605

REACTIONS (7)
  - Malignant neoplasm progression [Fatal]
  - Intentional product use issue [Unknown]
  - Nausea [Unknown]
  - Dehydration [Recovering/Resolving]
  - Asthenia [Not Recovered/Not Resolved]
  - Therapy non-responder [Unknown]
  - Anxiety [Unknown]

NARRATIVE: CASE EVENT DATE: 20190627
